FAERS Safety Report 5050364-3 (Version None)
Quarter: 2006Q2

REPORT INFORMATION
  Report Type: 
  Country: None (occurrence: None)
  Receive Date: 20060614
  Receipt Date: 20060404
  Transmission Date: 20061013
  Serious: Yes (Other)
  Sender: FDA-Public Use
  Company Number: 425285

PATIENT
  Sex: Female

DRUGS (1)
  1. BONIVA [Suspect]
     Indication: OSTEOPOROSIS
     Dosage: ORAL
     Route: 048

REACTIONS (10)
  - ABDOMINAL PAIN UPPER [None]
  - BONE PAIN [None]
  - CHEST PAIN [None]
  - DYSPEPSIA [None]
  - DYSPHAGIA [None]
  - HEADACHE [None]
  - ILL-DEFINED DISORDER [None]
  - NECK PAIN [None]
  - OESOPHAGEAL PAIN [None]
  - PAIN IN EXTREMITY [None]
